FAERS Safety Report 22169364 (Version 1)
Quarter: 2023Q2

REPORT INFORMATION
  Report Type: Spontaneous
  Country: PT (occurrence: PT)
  Receive Date: 20230404
  Receipt Date: 20230404
  Transmission Date: 20230722
  Serious: No
  Sender: FDA-Public Use
  Company Number: PT-ALKEM LABORATORIES LIMITED-PT-ALKEM-2022-15043

PATIENT
  Age: 47 Year
  Sex: Female

DRUGS (9)
  1. ADALIMUMAB [Suspect]
     Active Substance: ADALIMUMAB
     Indication: Aseptic pustule
     Dosage: 40 MILLIGRAM, ONCE IN 2 WEEKS
     Route: 065
  2. AMOXICILLIN\CLAVULANATE POTASSIUM [Suspect]
     Active Substance: AMOXICILLIN\CLAVULANATE POTASSIUM
     Indication: Aseptic pustule
     Dosage: UNK
     Route: 065
  3. COLCHICINE [Suspect]
     Active Substance: COLCHICINE
     Indication: Aseptic pustule
     Dosage: 0.6 MILLIGRAM, BID
     Route: 065
  4. FLUCLOXACILLIN [Suspect]
     Active Substance: FLUCLOXACILLIN
     Indication: Aseptic pustule
     Dosage: UNK
     Route: 065
  5. CEPHRADINE [Suspect]
     Active Substance: CEPHRADINE
     Indication: Aseptic pustule
     Dosage: 500 MILLIGRAM, BID (Q 12 H)
     Route: 065
  6. DAPSONE [Suspect]
     Active Substance: DAPSONE
     Indication: Aseptic pustule
     Dosage: 50 MILLIGRAM, QD
     Route: 065
  7. DAPSONE [Suspect]
     Active Substance: DAPSONE
     Dosage: 100 MILLIGRAM (INCREASED) (TAPERED BY 10 MG PER WEEK)
     Route: 065
  8. PREDNISOLONE [Suspect]
     Active Substance: PREDNISOLONE
     Indication: Aseptic pustule
     Dosage: 20 MILLIGRAM, QD (DAILY)
     Route: 065
  9. PREDNISOLONE [Suspect]
     Active Substance: PREDNISOLONE
     Dosage: 30 MILLIGRAM, QD (DOSE INCREASED)
     Route: 065

REACTIONS (4)
  - Dermatosis [Recovering/Resolving]
  - Condition aggravated [Recovering/Resolving]
  - Drug ineffective [Unknown]
  - Treatment failure [Unknown]
